FAERS Safety Report 25625725 (Version 1)
Quarter: 2025Q3

REPORT INFORMATION
  Report Type: Report from Study
  Country: US (occurrence: US)
  Receive Date: 20250731
  Receipt Date: 20250731
  Transmission Date: 20251020
  Serious: Yes (Other)
  Sender: ACADIA PHARMACEUTICALS
  Company Number: US-ACADIA PHARMACEUTICALS INC.-ACA-2025-PIM-008711

PATIENT
  Age: 99 Year
  Sex: Male

DRUGS (9)
  1. NUPLAZID [Suspect]
     Active Substance: PIMAVANSERIN TARTRATE
     Indication: Parkinson^s disease
     Dosage: 10 MILLIGRAM, QD
     Route: 048
     Dates: start: 20250612, end: 20250728
  2. ASPIRIN [Concomitant]
     Active Substance: ASPIRIN
  3. VITAMIN B12 [Concomitant]
     Active Substance: CYANOCOBALAMIN
  4. VITAMIN D3 [Concomitant]
     Active Substance: CHOLECALCIFEROL
  5. MELATONIN [Concomitant]
     Active Substance: MELATONIN
  6. CARBIDOPA\LEVODOPA [Concomitant]
     Active Substance: CARBIDOPA\LEVODOPA
  7. CITALOPRAM [Concomitant]
     Active Substance: CITALOPRAM
  8. QUETIAPINE [Concomitant]
     Active Substance: QUETIAPINE
  9. LISINOPRIL [Concomitant]
     Active Substance: LISINOPRIL

REACTIONS (3)
  - Hallucination [Unknown]
  - Insomnia [Unknown]
  - Drug ineffective [Unknown]

NARRATIVE: CASE EVENT DATE: 20250612
